FAERS Safety Report 5748387-1 (Version None)
Quarter: 2008Q2

REPORT INFORMATION
  Report Type: 
  Country: None (occurrence: None)
  Receive Date: 20080523
  Receipt Date: 20080515
  Transmission Date: 20081010
  Serious: Yes (Hospitalization)
  Sender: FDA-Public Use
  Company Number: GB-PFIZER INC-2008035167

PATIENT
  Sex: Female
  Weight: 88.5 kg

DRUGS (7)
  1. CELECOXIB [Suspect]
     Indication: OSTEOARTHRITIS
     Route: 048
     Dates: start: 20071120, end: 20071220
  2. SIMVASTATIN [Concomitant]
     Indication: HYPERLIPIDAEMIA
     Dosage: DAILY DOSE:20MG-FREQ:DAILY
     Route: 048
     Dates: start: 20061114, end: 20080115
  3. LEVOTHYROXINE SODIUM [Concomitant]
     Dosage: DAILY DOSE:50MG-FREQ:DAILY
     Route: 048
  4. BENDROFLUMETHIAZIDE [Concomitant]
     Indication: HYPERTENSION
     Dosage: DAILY DOSE:2.5MG-FREQ:DAILY
     Route: 048
     Dates: start: 19930312, end: 20080115
  5. FUCIBET [Concomitant]
  6. DICLOFENAC [Concomitant]
     Indication: OSTEOARTHRITIS
     Dosage: DAILY DOSE:100MG-FREQ:DAILY
     Route: 048
     Dates: start: 20071220, end: 20080115
  7. OMEPRAZOLE [Concomitant]
     Dosage: DAILY DOSE:20MG-FREQ:DAILY
     Route: 048
     Dates: start: 20071220, end: 20080115

REACTIONS (6)
  - ABDOMINAL PAIN [None]
  - ABDOMINAL PAIN LOWER [None]
  - DIARRHOEA [None]
  - HEPATIC CIRRHOSIS [None]
  - PAIN [None]
  - VOMITING [None]
